FAERS Safety Report 7039942-X (Version None)
Quarter: 2010Q4

REPORT INFORMATION
  Report Type: 
  Country: None (occurrence: None)
  Receive Date: 20101012
  Receipt Date: 20100929
  Transmission Date: 20110411
  Serious: Yes (Hospitalization)
  Sender: FDA-Public Use
  Company Number: NL-ELI_LILLY_AND_COMPANY-NL201010000669

PATIENT
  Sex: Female
  Weight: 55 kg

DRUGS (1)
  1. ZYPREXA [Suspect]
     Indication: DISINHIBITION
     Dosage: 5 MG, DAILY (1/D)
     Route: 065
     Dates: start: 20041107, end: 20080127

REACTIONS (2)
  - OFF LABEL USE [None]
  - PANCYTOPENIA [None]
